FAERS Safety Report 7480481-X (Version None)
Quarter: 2011Q2

REPORT INFORMATION
  Report Type: 
  Country: None (occurrence: None)
  Receive Date: 20110516
  Receipt Date: 20110501
  Transmission Date: 20111010
  Serious: Yes (Other)
  Sender: FDA-Public Use
  Company Number: UA-JNJFOC-20110502985

PATIENT
  Sex: Female

DRUGS (7)
  1. INVEGA SUSTENNA [Suspect]
     Indication: BIPOLAR I DISORDER
     Route: 030
  2. SPIRONOLACTONE [Concomitant]
     Indication: PRODUCT USED FOR UNKNOWN INDICATION
     Route: 065
  3. INVEGA [Suspect]
     Indication: BIPOLAR I DISORDER
     Route: 048
  4. AMPHETAMINE [Suspect]
     Indication: PRODUCT USED FOR UNKNOWN INDICATION
     Route: 065
  5. RISPERDAL CONSTA [Suspect]
     Route: 065
     Dates: start: 20090101
  6. RISPERDONE [Suspect]
     Indication: BIPOLAR I DISORDER
     Route: 065
  7. RISPERDAL CONSTA [Suspect]
     Indication: BIPOLAR I DISORDER
     Route: 065
     Dates: start: 20110406

REACTIONS (9)
  - ABNORMAL BEHAVIOUR [None]
  - DEPRESSION [None]
  - IRRITABILITY [None]
  - APATHY [None]
  - REPETITIVE SPEECH [None]
  - AGGRESSION [None]
  - LOGORRHOEA [None]
  - NERVOUSNESS [None]
  - ANTISOCIAL BEHAVIOUR [None]
